FAERS Safety Report 19236037 (Version 1)
Quarter: 2021Q2

REPORT INFORMATION
  Report Type: Spontaneous
  Country: CA (occurrence: CA)
  Receive Date: 20210510
  Receipt Date: 20210510
  Transmission Date: 20210717
  Serious: Yes (Life-Threatening, Hospitalization)
  Sender: FDA-Public Use
  Company Number: CA-TEVA-2021-CA-1908663

PATIENT
  Age: 64 Year
  Sex: Female
  Weight: 93 kg

DRUGS (4)
  1. TAMOXIFEN [Suspect]
     Active Substance: TAMOXIFEN
     Indication: HORMONE RECEPTOR POSITIVE BREAST CANCER
     Dosage: 1 DOSAGE FORMS DAILY;
     Route: 048
  2. MAGNESIUM [Concomitant]
     Active Substance: MAGNESIUM
  3. CALCIUM [Concomitant]
     Active Substance: CALCIUM
  4. CETIRIZINE [Concomitant]
     Active Substance: CETIRIZINE HYDROCHLORIDE

REACTIONS (11)
  - Joint swelling [Unknown]
  - Loss of consciousness [Unknown]
  - Arthralgia [Unknown]
  - Myocardial ischaemia [Unknown]
  - Oxygen therapy [Unknown]
  - Limb injury [Unknown]
  - Pulmonary embolism [Unknown]
  - Hyperhidrosis [Unknown]
  - Venous thrombosis limb [Unknown]
  - Dyspnoea [Unknown]
  - Pallor [Unknown]
